FAERS Safety Report 8775459 (Version 1)
Quarter: 2012Q4

REPORT INFORMATION
  Report Type: 
  Country: US (occurrence: US)
  Receive Date: 20120910
  Receipt Date: 20120910
  Transmission Date: 20130627
  Serious: No
  Sender: FDA-Public Use
  Company Number: US-ASTRAZENECA-2012SE60157

PATIENT
  Age: 782 Month
  Sex: Female
  Weight: 82.6 kg

DRUGS (5)
  1. SYMBICORT [Suspect]
     Indication: ASTHMA
     Dosage: 160/4.5 2 puffs BID
     Route: 055
     Dates: start: 2009
  2. PAXIL [Concomitant]
  3. PRESTIQ [Concomitant]
  4. DETROL [Concomitant]
  5. ATAVAN [Concomitant]

REACTIONS (3)
  - Dyspnoea [Unknown]
  - Bronchitis [Unknown]
  - Intentional drug misuse [Unknown]
